FAERS Safety Report 8264759-8 (Version None)
Quarter: 2012Q2

REPORT INFORMATION
  Report Type: 
  Country: None (occurrence: None)
  Receive Date: 20120406
  Receipt Date: 20120328
  Transmission Date: 20120825
  Serious: Yes (Hospitalization, Other)
  Sender: FDA-Public Use
  Company Number: NO-JNJFOC-20120400315

PATIENT
  Age: 21 Year
  Sex: Female
  Weight: 50 kg

DRUGS (5)
  1. ANTIHISTAMINES [Concomitant]
     Indication: PREMEDICATION
     Route: 065
     Dates: start: 20120101
  2. HUMIRA [Concomitant]
     Indication: COLITIS ULCERATIVE
     Route: 065
  3. SOLU-CORTEF [Concomitant]
     Indication: PREMEDICATION
     Route: 065
     Dates: start: 20120101
  4. REMICADE [Suspect]
     Route: 042
  5. REMICADE [Suspect]
     Indication: COLITIS ULCERATIVE
     Route: 042
     Dates: start: 20120110, end: 20120101

REACTIONS (3)
  - ANAPHYLACTIC REACTION [None]
  - URTICARIA [None]
  - JOINT STIFFNESS [None]
